FAERS Safety Report 20089293 (Version 2)
Quarter: 2021Q4

REPORT INFORMATION
  Report Type: Other
  Country: NL (occurrence: None)
  Receive Date: 20211119
  Receipt Date: 20211227
  Transmission Date: 20220303
  Serious: No
  Sender: FDA-Public Use
  Company Number: NL-ROCHE-2957652

PATIENT
  Age: 62 Year
  Sex: Male
  Weight: 82 kg

DRUGS (7)
  1. OCRELIZUMAB [Suspect]
     Active Substance: OCRELIZUMAB
     Indication: Primary progressive multiple sclerosis
     Route: 042
     Dates: start: 20190917
  2. SOLU-MEDROL [Concomitant]
     Active Substance: METHYLPREDNISOLONE SODIUM SUCCINATE
     Route: 042
     Dates: start: 20211011, end: 20211011
  3. CLEMASTINE [Concomitant]
     Active Substance: CLEMASTINE
     Route: 048
     Dates: start: 20211011, end: 20211011
  4. ACETAMINOPHEN [Concomitant]
     Active Substance: ACETAMINOPHEN
     Indication: Adverse event
     Route: 048
     Dates: start: 20211011, end: 20211011
  5. ACETAMINOPHEN [Concomitant]
     Active Substance: ACETAMINOPHEN
     Route: 048
     Dates: start: 20211202
  6. RIVAROXABAN [Concomitant]
     Active Substance: RIVAROXABAN
     Indication: Adverse event
     Route: 048
     Dates: start: 20211202
  7. OXYCODONE HYDROCHLORIDE [Concomitant]
     Active Substance: OXYCODONE HYDROCHLORIDE
     Indication: Adverse event
     Route: 048
     Dates: start: 20211202

REACTIONS (1)
  - COVID-19 [Recovering/Resolving]

NARRATIVE: CASE EVENT DATE: 20211109
